FAERS Safety Report 5420050-6 (Version None)
Quarter: 2007Q3

REPORT INFORMATION
  Report Type: 
  Country: None (occurrence: None)
  Receive Date: 20070820
  Receipt Date: 20070808
  Transmission Date: 20080115
  Serious: Yes (Other)
  Sender: FDA-Public Use
  Company Number: CL-PFIZER INC-2007066739

PATIENT
  Age: 62 Year
  Sex: Male

DRUGS (2)
  1. VARENICLINE TABLETS [Suspect]
     Indication: SMOKING CESSATION THERAPY
     Route: 048
  2. BETAXOLOL [Concomitant]
     Route: 047

REACTIONS (2)
  - ARTHROPATHY [None]
  - MYALGIA [None]
